FAERS Safety Report 25088731 (Version 1)
Quarter: 2025Q1

REPORT INFORMATION
  Report Type: Spontaneous
  Country: US (occurrence: None)
  Receive Date: 20250318
  Receipt Date: 20250318
  Transmission Date: 20250409
  Serious: Yes (Death, Life-Threatening)
  Sender: NORDIC PHARMA
  Company Number: US-MLMSERVICE-20250221-PI413434-00218-3

PATIENT
  Age: 61 Year
  Sex: Male

DRUGS (7)
  1. METHOTREXATE [Suspect]
     Active Substance: METHOTREXATE
     Indication: Psoriatic arthropathy
  2. MYCOPHENOLIC ACID [Concomitant]
     Active Substance: MYCOPHENOLIC ACID
     Indication: Psoriatic arthropathy
  3. LEFLUNOMIDE [Concomitant]
     Active Substance: LEFLUNOMIDE
     Indication: Psoriatic arthropathy
  4. SULFASALAZINE [Concomitant]
     Active Substance: SULFASALAZINE
     Indication: Psoriatic arthropathy
  5. METHYLPREDNISOLONE [Concomitant]
     Active Substance: METHYLPREDNISOLONE
     Indication: Psoriatic arthropathy
  6. ADALIMUMAB [Concomitant]
     Active Substance: ADALIMUMAB
     Indication: Psoriatic arthropathy
  7. SECUKINUMAB [Concomitant]
     Active Substance: SECUKINUMAB
     Indication: Psoriatic arthropathy

REACTIONS (5)
  - Epstein-Barr virus associated lymphoma [Fatal]
  - Lymphoma transformation [Fatal]
  - Extranodal marginal zone B-cell lymphoma (MALT type) [Fatal]
  - Clonal haematopoiesis [Fatal]
  - Plasmablastic lymphoma [Fatal]

NARRATIVE: CASE EVENT DATE: 20210101
